FAERS Safety Report 9614681 (Version 3)
Quarter: 2014Q1

REPORT INFORMATION
  Report Type: Spontaneous
  Country: DE (occurrence: DE)
  Receive Date: 20131011
  Receipt Date: 20140116
  Transmission Date: 20141002
  Serious: Yes (Hospitalization, Other)
  Sender: FDA-Public Use
  Company Number: DE-EISAI INC-E7389-04260-SPO-DE

PATIENT
  Age: 46 Year
  Sex: Female
  Weight: 103 kg

DRUGS (5)
  1. HALAVEN [Suspect]
     Indication: BREAST CANCER METASTATIC
     Route: 041
     Dates: start: 20130723, end: 20130730
  2. LAPATINIB [Suspect]
     Indication: BREAST CANCER METASTATIC
     Route: 048
     Dates: start: 20130723, end: 20130802
  3. BISOPROLOL [Concomitant]
     Indication: HYPERTENSION
     Dosage: 10/25MG
     Route: 048
     Dates: start: 2000
  4. INSULIN [Concomitant]
     Indication: DIABETES MELLITUS
     Route: 058
     Dates: start: 2012
  5. IBUPROFEN [Concomitant]
     Indication: ABDOMINAL PAIN
     Route: 048
     Dates: start: 2010

REACTIONS (6)
  - Jaundice [Recovering/Resolving]
  - Hepatic enzyme increased [Recovering/Resolving]
  - Stomatitis [Recovered/Resolved]
  - Polyneuropathy [Unknown]
  - Febrile neutropenia [Recovered/Resolved]
  - Acne [Recovering/Resolving]
